FAERS Safety Report 10064933 (Version 7)
Quarter: 2015Q3

REPORT INFORMATION
  Report Type: Spontaneous
  Country: US (occurrence: US)
  Receive Date: 20140408
  Receipt Date: 20150708
  Transmission Date: 20151125
  Serious: Yes (Life-Threatening, Hospitalization, Other)
  Sender: FDA-Public Use
  Company Number: US-MERCK-1404USA004117

PATIENT
  Sex: Male
  Weight: 104.31 kg

DRUGS (1)
  1. JANUVIA [Suspect]
     Active Substance: SITAGLIPTIN PHOSPHATE
     Indication: TYPE 2 DIABETES MELLITUS
     Dosage: 100 MG, QD
     Route: 048
     Dates: start: 20100611, end: 20120119

REACTIONS (34)
  - Gastric operation [Unknown]
  - Stent placement [Unknown]
  - Flank pain [Unknown]
  - Thrombosis prophylaxis [Unknown]
  - Arthralgia [Unknown]
  - Neuroendocrine carcinoma [Unknown]
  - Hypercholesterolaemia [Unknown]
  - Glomerulonephritis [Unknown]
  - Gout [Unknown]
  - Hyperlipidaemia [Unknown]
  - Biliary tract disorder [Unknown]
  - Asthma [Unknown]
  - Peripheral vascular disorder [Unknown]
  - Pancreatitis acute [Unknown]
  - Lipoma [Unknown]
  - Hypertensive heart disease [Unknown]
  - Coronary arterial stent insertion [Unknown]
  - Back pain [Not Recovered/Not Resolved]
  - Abdominal pain [Unknown]
  - Hypertension [Not Recovered/Not Resolved]
  - Hypersensitivity [Unknown]
  - Anaemia of chronic disease [Not Recovered/Not Resolved]
  - Tumour excision [Unknown]
  - Drug hypersensitivity [Unknown]
  - Seizure [Unknown]
  - Renal cell carcinoma [Unknown]
  - Renal cyst [Unknown]
  - Tubulointerstitial nephritis [Not Recovered/Not Resolved]
  - Pancreaticoduodenectomy [Recovered/Resolved]
  - Nephrectomy [Unknown]
  - Nephrectomy [Unknown]
  - Hepatic cyst [Unknown]
  - Cholelithiasis [Unknown]
  - Hypokalaemia [Unknown]

NARRATIVE: CASE EVENT DATE: 201208
